FAERS Safety Report 13586820 (Version 1)
Quarter: 2017Q2

REPORT INFORMATION
  Report Type: Spontaneous
  Country: US (occurrence: US)
  Receive Date: 20170526
  Receipt Date: 20170526
  Transmission Date: 20170830
  Serious: No
  Sender: FDA-Public Use
  Company Number: US-ROCHE-1356864

PATIENT
  Age: 2 Year
  Sex: Female

DRUGS (1)
  1. VALCYTE [Suspect]
     Active Substance: VALGANCICLOVIR HYDROCHLORIDE
     Indication: TRANSPLANT
     Dosage: 7XBSAXCRCL, 2-3 WEEKS
     Route: 065

REACTIONS (2)
  - Abnormal behaviour [Unknown]
  - Aggression [Unknown]
